FAERS Safety Report 16308481 (Version 2)
Quarter: 2019Q2

REPORT INFORMATION
  Report Type: Spontaneous
  Country: US (occurrence: US)
  Receive Date: 20190514
  Receipt Date: 20190611
  Transmission Date: 20190711
  Serious: Yes (Life-Threatening, Hospitalization, Disabling, Other)
  Sender: FDA-Public Use
  Company Number: US-009507513-1905USA005187

PATIENT
  Age: 60 Year
  Sex: Male

DRUGS (3)
  1. STEGLATRO [Suspect]
     Active Substance: ERTUGLIFLOZIN PIDOLATE
     Indication: DIABETES MELLITUS
     Dosage: 15 MILLIGRAM
     Route: 048
  2. METFORMIN [Concomitant]
     Active Substance: METFORMIN HYDROCHLORIDE
     Dosage: UNK
  3. ATORVASTATIN [Concomitant]
     Active Substance: ATORVASTATIN
     Dosage: 40 MILLIGRAM

REACTIONS (5)
  - Cerebrovascular accident [Recovering/Resolving]
  - Motor dysfunction [Unknown]
  - Product administration error [Unknown]
  - Pain in extremity [Recovering/Resolving]
  - Muscular weakness [Recovering/Resolving]
